FAERS Safety Report 9557779 (Version 1)
Quarter: 2013Q3

REPORT INFORMATION
  Report Type: Spontaneous
  Country: US (occurrence: None)
  Receive Date: 20130724
  Receipt Date: 20130724
  Transmission Date: 20140515
  Serious: No
  Sender: FDA-Public Use
  Company Number: PHEH2013US005273

PATIENT
  Age: 54 Year
  Sex: Female
  Weight: 102 kg

DRUGS (7)
  1. GILENYA [Suspect]
     Route: 048
     Dates: start: 20130301
  2. METFORMIN [Concomitant]
  3. LOVASTATIN [Concomitant]
  4. CENTRUM (MINERALS NOS, VITAMINS NOS) [Concomitant]
  5. BACLOFEN [Concomitant]
  6. BABY ASPIRIN (ACETYLSALICYLIC ACID) [Concomitant]
  7. INSULIN [Concomitant]

REACTIONS (3)
  - Nausea [None]
  - Dizziness [None]
  - Asthenia [None]
